FAERS Safety Report 24896927 (Version 2)
Quarter: 2025Q1

REPORT INFORMATION
  Report Type: Spontaneous
  Country: IT (occurrence: IT)
  Receive Date: 20250128
  Receipt Date: 20250320
  Transmission Date: 20250408
  Serious: Yes (Death, Other)
  Sender: AMGEN
  Company Number: IT-AMGEN-ITASP2025012154

PATIENT

DRUGS (2)
  1. BEVACIZUMAB [Suspect]
     Active Substance: BEVACIZUMAB
     Indication: Hepatocellular carcinoma
     Route: 065
  2. ATEZOLIZUMAB [Suspect]
     Active Substance: ATEZOLIZUMAB
     Indication: Hepatocellular carcinoma
     Route: 065

REACTIONS (32)
  - Sudden death [Fatal]
  - Hepatic failure [Fatal]
  - Hepatocellular carcinoma [Fatal]
  - Adverse event [Fatal]
  - Chronic hepatic failure [Fatal]
  - Ascites [Unknown]
  - Hepatic encephalopathy [Unknown]
  - Hyperthyroidism [Unknown]
  - Hypothyroidism [Unknown]
  - Arthritis [Unknown]
  - Nephritis [Unknown]
  - Colitis [Unknown]
  - Jaundice [Unknown]
  - Portal hypertension [Unknown]
  - Thrombosis [Unknown]
  - Haemorrhage [Fatal]
  - Sepsis [Fatal]
  - Hypertension [Unknown]
  - Proteinuria [Unknown]
  - Stomatitis [Unknown]
  - Gastrointestinal haemorrhage [Unknown]
  - Neuropathy peripheral [Unknown]
  - Off label use [Unknown]
  - Pruritus [Unknown]
  - Skin reaction [Unknown]
  - Drug effective for unapproved indication [Unknown]
  - Alanine aminotransferase increased [Unknown]
  - Aspartate aminotransferase increased [Unknown]
  - Fatigue [Unknown]
  - Decreased appetite [Unknown]
  - Diarrhoea [Unknown]
  - Therapy partial responder [Unknown]
